FAERS Safety Report 10735571 (Version 1)
Quarter: 2015Q1

REPORT INFORMATION
  Report Type: Spontaneous
  Country: US (occurrence: US)
  Receive Date: 20150126
  Receipt Date: 20150126
  Transmission Date: 20150721
  Serious: Yes (Life-Threatening, Hospitalization)
  Sender: FDA-Public Use
  Company Number: US-JNJFOC-20150106043

PATIENT
  Age: 16 Year
  Sex: Female

DRUGS (1)
  1. TYLENOL PM EXTRA STRENGTH [Suspect]
     Active Substance: ACETAMINOPHEN\DIPHENHYDRAMINE HYDROCHLORIDE
     Indication: SUICIDE ATTEMPT
     Route: 048

REACTIONS (7)
  - Tachycardia [Recovered/Resolved]
  - Hallucination [Recovered/Resolved]
  - Intentional overdose [Unknown]
  - Vomiting [Recovered/Resolved]
  - Electrocardiogram abnormal [Unknown]
  - Altered state of consciousness [Recovered/Resolved]
  - Blood electrolytes abnormal [Unknown]

NARRATIVE: CASE EVENT DATE: 20050330
